FAERS Safety Report 16745215 (Version 2)
Quarter: 2019Q3

REPORT INFORMATION
  Report Type: Spontaneous
  Country: ES (occurrence: ES)
  Receive Date: 20190827
  Receipt Date: 20190912
  Transmission Date: 20191005
  Serious: Yes (Other)
  Sender: FDA-Public Use
  Company Number: ES-PFIZER INC-2019360663

PATIENT
  Sex: Female
  Weight: 63 kg

DRUGS (1)
  1. PROGEVERA [Suspect]
     Active Substance: MEDROXYPROGESTERONE ACETATE
     Indication: MENSTRUATION IRREGULAR
     Dosage: 10 MG, DAILY (ONE PILL DAILYFOR 12 DAYS. 15 DAYS OFF AND ANOTHER PILL DAILY FOR ANOTHER 15)
     Route: 048
     Dates: start: 20190704, end: 20190805

REACTIONS (3)
  - Pollakiuria [Recovering/Resolving]
  - Anaemia [Recovering/Resolving]
  - Dysuria [Recovering/Resolving]

NARRATIVE: CASE EVENT DATE: 201907
